FAERS Safety Report 9301442 (Version 1)
Quarter: 2013Q2

REPORT INFORMATION
  Report Type: Spontaneous
  Country: US (occurrence: US)
  Receive Date: 20130521
  Receipt Date: 20130521
  Transmission Date: 20140414
  Serious: Yes (Hospitalization, Other)
  Sender: FDA-Public Use
  Company Number: US-JNJFOC-20130213745

PATIENT
  Age: 41 Year
  Sex: Male
  Weight: 104.33 kg

DRUGS (33)
  1. REMICADE [Suspect]
     Indication: CROHN^S DISEASE
     Route: 042
     Dates: start: 20120117
  2. REMICADE [Suspect]
     Indication: CROHN^S DISEASE
     Route: 042
     Dates: start: 20110926
  3. REMICADE [Suspect]
     Indication: CROHN^S DISEASE
     Route: 042
     Dates: start: 20111121
  4. REMICADE [Suspect]
     Indication: CROHN^S DISEASE
     Route: 042
     Dates: start: 20110729
  5. REMICADE [Suspect]
     Indication: CROHN^S DISEASE
     Route: 042
     Dates: start: 20120426, end: 20120426
  6. REMICADE [Suspect]
     Indication: CROHN^S DISEASE
     Route: 042
     Dates: start: 201106
  7. REMICADE [Suspect]
     Indication: CROHN^S DISEASE
     Route: 042
     Dates: start: 20130415
  8. REMICADE [Suspect]
     Indication: CROHN^S DISEASE
     Route: 042
     Dates: start: 20120313
  9. AZATHIOPRINE [Suspect]
     Indication: CROHN^S DISEASE
     Route: 065
     Dates: start: 201106, end: 201201
  10. MULTIPLE VITAMINS [Concomitant]
     Route: 048
  11. PREDNISONE [Concomitant]
     Indication: PREMEDICATION
     Route: 048
  12. TYLENOL [Concomitant]
     Indication: PREMEDICATION
     Route: 048
  13. BENADRYL [Concomitant]
     Indication: PREMEDICATION
     Route: 042
  14. SINGULAIR [Concomitant]
     Indication: ASTHMA
     Route: 048
  15. ENTOCORT [Concomitant]
     Dosage: 3 P.O Q A.M
     Route: 065
  16. ASACOL [Concomitant]
     Dosage: 6 (UNITS UNSPECIFIED)
     Route: 048
  17. JANUVIA [Concomitant]
     Route: 048
  18. MVI [Concomitant]
     Route: 065
  19. VITAMIN B12 [Concomitant]
     Dosage: DOSE: 1 (UNITS UNSPECIFIED)
     Route: 048
  20. DITROPAN XL [Concomitant]
     Route: 048
  21. CIPROFLOXACIN [Concomitant]
     Route: 048
  22. FLORASTOR [Concomitant]
     Route: 048
  23. BENTYL [Concomitant]
     Dosage: AS NECESSARY
     Route: 048
  24. COLCHICINE [Concomitant]
     Dosage: DOSE: 1(UNITS UNSPECIFIED)
     Route: 048
  25. ACETAMINOPHEN [Concomitant]
     Indication: PREMEDICATION
     Route: 065
  26. PROMACTA [Concomitant]
     Dosage: DOSE; 1 (UNITS UNSPECIFIED)
     Route: 048
  27. MEDROL [Concomitant]
     Dosage: USE AS DIRECTED AFTER??REMICADE INFUSIONS
     Route: 065
  28. QUESTRAN [Concomitant]
     Dosage: 4 G MIXED IN 8 OUNCES OF WATER OR SUGAR-FREE JUICE B.I.D. AT LEAST 2 HOURS
     Route: 065
  29. TYSABRI [Concomitant]
     Route: 065
  30. CITALOPRAM [Concomitant]
     Route: 048
  31. ULORIC [Concomitant]
     Dosage: DOSE: 1 (UNITS UNSPECIFIED)
     Route: 048
  32. COLCRYS [Concomitant]
     Route: 065
  33. HUMIRA [Concomitant]
     Route: 065

REACTIONS (22)
  - Clostridium difficile infection [Unknown]
  - Feeling hot [Recovering/Resolving]
  - Nasopharyngitis [Unknown]
  - Autoimmune thrombocytopenia [Unknown]
  - Dyspnoea [Recovered/Resolved]
  - Infusion related reaction [Recovering/Resolving]
  - Chest pain [Recovered/Resolved]
  - Drug hypersensitivity [Unknown]
  - Nausea [Recovered/Resolved]
  - Erythema [Recovering/Resolving]
  - Cholelithiasis [Unknown]
  - Idiopathic thrombocytopenic purpura [Unknown]
  - Crohn^s disease [Unknown]
  - Pericardial effusion [Unknown]
  - Micturition disorder [Unknown]
  - Rash [Recovered/Resolved]
  - Drug ineffective [Unknown]
  - Arthralgia [Unknown]
  - Sleep apnoea syndrome [Unknown]
  - Rash pruritic [Unknown]
  - Pyrexia [Unknown]
  - Chills [Unknown]
